FAERS Safety Report 5066561-7 (Version None)
Quarter: 2006Q3

REPORT INFORMATION
  Report Type: 
  Country: None (occurrence: None)
  Receive Date: 20060801
  Receipt Date: 20060721
  Transmission Date: 20061208
  Serious: Yes (Other)
  Sender: FDA-Public Use
  Company Number: ES-ABBOTT-06P-144-0338622-00

PATIENT
  Age: 80 Year
  Sex: Female

DRUGS (7)
  1. DEPAKENE [Suspect]
     Indication: EPILEPSY
     Route: 048
     Dates: start: 19950101, end: 20060103
  2. DEPAKENE [Suspect]
     Dates: start: 20060104, end: 20060104
  3. DEPAKENE [Suspect]
     Dates: start: 20060105, end: 20060109
  4. DEPAKENE [Suspect]
     Route: 048
     Dates: start: 20060121
  5. DEPAKENE [Suspect]
     Route: 042
     Dates: start: 20060110, end: 20060110
  6. DEPAKENE [Suspect]
     Route: 042
     Dates: start: 20060111, end: 20060120
  7. INVANZ [Interacting]
     Indication: PNEUMONIA BACTERIAL
     Route: 042
     Dates: start: 20051231, end: 20060109

REACTIONS (2)
  - DRUG INTERACTION INHIBITION [None]
  - DRUG LEVEL DECREASED [None]
